FAERS Safety Report 6006581-9 (Version None)
Quarter: 2008Q4

REPORT INFORMATION
  Report Type: 
  Country: None (occurrence: None)
  Receive Date: 20081217
  Receipt Date: 20081215
  Transmission Date: 20090506
  Serious: Yes (Hospitalization)
  Sender: FDA-Public Use
  Company Number: US-BRISTOL-MYERS SQUIBB COMPANY-14443246

PATIENT
  Age: 64 Year
  Sex: Female

DRUGS (2)
  1. CISPLATIN [Suspect]
     Indication: FALLOPIAN TUBE CANCER
     Route: 033
  2. PACLITAXEL [Suspect]
     Indication: FALLOPIAN TUBE CANCER
     Route: 042

REACTIONS (1)
  - REVERSIBLE POSTERIOR LEUKOENCEPHALOPATHY SYNDROME [None]
